FAERS Safety Report 8418877-1 (Version None)
Quarter: 2012Q2

REPORT INFORMATION
  Report Type: 
  Country: None (occurrence: None)
  Receive Date: 20120607
  Receipt Date: 20120601
  Transmission Date: 20120825
  Serious: Yes (Other)
  Sender: FDA-Public Use
  Company Number: US-ROCHE-1062515

PATIENT
  Sex: Female
  Weight: 65.376 kg

DRUGS (3)
  1. PEGASYS [Suspect]
     Indication: HEPATITIS C
     Route: 058
     Dates: start: 20120217, end: 20120425
  2. RIBAVIRIN [Suspect]
     Indication: HEPATITIS C
     Dosage: 2 TABLETS IN MORNING AND 2 IN EVENING
     Dates: start: 20120217, end: 20120425
  3. INCIVEK [Suspect]
     Indication: HEPATITIS C
     Dosage: 2 TABLETS
     Route: 048
     Dates: start: 20120224

REACTIONS (8)
  - ANAEMIA [None]
  - ORAL MUCOSAL BLISTERING [None]
  - SKIN DISCOLOURATION [None]
  - UPPER EXTREMITY MASS [None]
  - SKIN ULCER [None]
  - BLISTER [None]
  - RASH [None]
  - MOUTH ULCERATION [None]
